FAERS Safety Report 8033905-3 (Version None)
Quarter: 2012Q1

REPORT INFORMATION
  Report Type: 
  Country: None (occurrence: None)
  Receive Date: 20120110
  Receipt Date: 20120105
  Transmission Date: 20120608
  Serious: Yes (Other)
  Sender: FDA-Public Use
  Company Number: US-ASTRAZENECA-2012SE00936

PATIENT
  Sex: Female
  Weight: 47.6 kg

DRUGS (10)
  1. CRESTOR [Suspect]
     Route: 048
  2. AMLODIPINE [Concomitant]
     Indication: BLOOD PRESSURE ABNORMAL
  3. COENZYME Q10 [Concomitant]
  4. LISINOPRIL [Concomitant]
     Indication: BLOOD PRESSURE ABNORMAL
     Route: 048
  5. CRESTOR [Suspect]
     Route: 048
  6. CRILL OIL FISH OIL [Concomitant]
     Dosage: QD
  7. MULTIPLE VITAMINS [Concomitant]
     Dosage: BID
  8. CRESTOR [Suspect]
     Indication: HYPERCHOLESTEROLAEMIA
     Route: 048
  9. CRESTOR [Suspect]
     Indication: BLOOD TRIGLYCERIDES INCREASED
     Route: 048
  10. ASPIRIN [Concomitant]

REACTIONS (4)
  - ANEURYSM [None]
  - OFF LABEL USE [None]
  - CEREBROVASCULAR ACCIDENT [None]
  - MYALGIA [None]
